FAERS Safety Report 6982138-8 (Version None)
Quarter: 2010Q3

REPORT INFORMATION
  Report Type: 
  Country: None (occurrence: None)
  Receive Date: 20100914
  Receipt Date: 20100719
  Transmission Date: 20110219
  Serious: Yes (Other)
  Sender: FDA-Public Use
  Company Number: US-PFIZER INC-2006071652

PATIENT
  Sex: Female
  Weight: 82.3 kg

DRUGS (7)
  1. LYRICA [Suspect]
     Indication: NEUROPATHY PERIPHERAL
     Dosage: 75 MG, DAILY
     Route: 048
     Dates: start: 20050101
  2. PRAVACHOL [Concomitant]
     Dosage: UNK
     Route: 065
  3. INSULIN [Concomitant]
     Dosage: UNK
     Route: 065
  4. CLONIDINE [Concomitant]
     Dosage: UNK
     Route: 065
  5. ACETYLSALICYLIC ACID [Concomitant]
     Dosage: UNK
     Route: 065
  6. CENTRUM [Concomitant]
     Dosage: UNK
     Route: 065
  7. VALSARTAN [Concomitant]
     Dosage: UNK

REACTIONS (3)
  - BLOOD GLUCOSE INCREASED [None]
  - DRUG INEFFECTIVE [None]
  - WEIGHT INCREASED [None]
